FAERS Safety Report 10558697 (Version 2)
Quarter: 2014Q4

REPORT INFORMATION
  Report Type: Spontaneous
  Country: US (occurrence: US)
  Receive Date: 20141031
  Receipt Date: 20141031
  Transmission Date: 20150529
  Serious: Yes (Other)
  Sender: FDA-Public Use
  Company Number: US-ASTRAZENECA-2004UW03020

PATIENT
  Age: 26277 Day
  Sex: Female
  Weight: 68 kg

DRUGS (11)
  1. CRESTOR [Suspect]
     Active Substance: ROSUVASTATIN CALCIUM
     Indication: BLOOD CHOLESTEROL INCREASED
     Route: 048
     Dates: start: 20031219, end: 20040209
  2. VITAMIN [Concomitant]
     Active Substance: VITAMINS
  3. CALCIUM [Concomitant]
     Active Substance: CALCIUM
  4. COREG [Concomitant]
     Active Substance: CARVEDILOL
  5. FOSAMAX [Concomitant]
     Active Substance: ALENDRONATE SODIUM
     Dosage: ONCE A WEEK
  6. CHONDROITIN [Concomitant]
     Active Substance: CHONDROITIN
  7. DETROL LA [Concomitant]
     Active Substance: TOLTERODINE TARTRATE
  8. GLUCOSAMINE [Concomitant]
     Active Substance: GLUCOSAMINE
  9. CRESTOR [Suspect]
     Active Substance: ROSUVASTATIN CALCIUM
     Indication: BLOOD CHOLESTEROL INCREASED
     Route: 048
     Dates: start: 200312, end: 200402
  10. LEVOXYL [Concomitant]
     Active Substance: LEVOTHYROXINE SODIUM
  11. LISINOPRIL. [Concomitant]
     Active Substance: LISINOPRIL

REACTIONS (8)
  - Clavicle fracture [Unknown]
  - Muscle injury [Unknown]
  - Fatigue [Unknown]
  - Back pain [Recovering/Resolving]
  - Myalgia [Recovered/Resolved]
  - Road traffic accident [Unknown]
  - Ejection fraction decreased [Unknown]
  - Blood triglycerides increased [Unknown]

NARRATIVE: CASE EVENT DATE: 20031230
